FAERS Safety Report 21233736 (Version 1)
Quarter: 2022Q3

REPORT INFORMATION
  Report Type: Spontaneous
  Country: US (occurrence: None)
  Receive Date: 20220819
  Receipt Date: 20220819
  Transmission Date: 20221026
  Serious: Yes (Hospitalization)
  Sender: FDA-Public Use
  Company Number: None

PATIENT
  Sex: Male

DRUGS (4)
  1. XGEVA [Suspect]
     Active Substance: DENOSUMAB
     Indication: Metastases to bone
     Dosage: FREQUENCY : MONTHLY;?
     Route: 058
     Dates: start: 20220726
  2. ACTHAR [Suspect]
     Active Substance: CORTICOTROPIN
     Indication: Retinal vein occlusion
  3. ACTHAR [Suspect]
     Active Substance: CORTICOTROPIN
     Indication: Macular oedema
  4. ACTHAR [Suspect]
     Active Substance: CORTICOTROPIN
     Indication: Uveitis

REACTIONS (3)
  - Malaise [None]
  - Prostate cancer [None]
  - Bone cancer [None]
